FAERS Safety Report 6644161-2 (Version None)
Quarter: 2010Q1

REPORT INFORMATION
  Report Type: 
  Country: None (occurrence: None)
  Receive Date: 20100322
  Receipt Date: 20100317
  Transmission Date: 20100710
  Serious: Yes (Death)
  Sender: FDA-Public Use
  Company Number: PHHY2009JP53655

PATIENT
  Age: 23 Year
  Sex: Female

DRUGS (3)
  1. GLEEVEC [Suspect]
     Indication: PULMONARY ARTERIAL HYPERTENSION
     Dosage: 50 MG DAILY
     Route: 048
     Dates: start: 20081224
  2. GLEEVEC [Suspect]
     Dosage: 100 MG DAILY
     Dates: start: 20090105
  3. GLEEVEC [Suspect]
     Dosage: 200 MG DAILY
     Dates: start: 20090109

REACTIONS (4)
  - DISEASE PROGRESSION [None]
  - NAUSEA [None]
  - PULMONARY ARTERIAL HYPERTENSION [None]
  - RASH [None]
